FAERS Safety Report 9735821 (Version 1)
Quarter: 2013Q4

REPORT INFORMATION
  Report Type: Spontaneous
  Country: US (occurrence: US)
  Receive Date: 20131206
  Receipt Date: 20131206
  Transmission Date: 20140711
  Serious: No
  Sender: FDA-Public Use
  Company Number: US-GILEAD-2009-0023813

PATIENT
  Sex: Female
  Weight: 71.21 kg

DRUGS (19)
  1. LETAIRIS [Suspect]
     Indication: PULMONARY ARTERIAL HYPERTENSION
     Route: 048
     Dates: start: 20090730
  2. DILTIAZEM [Concomitant]
  3. SIMVASTATIN [Concomitant]
  4. ARIMIDEX [Concomitant]
  5. PREDNISONE [Concomitant]
  6. SINGULAIR [Concomitant]
  7. VENTOLIN [Concomitant]
  8. SPIRIVA [Concomitant]
  9. ADVAIR [Concomitant]
  10. RESTASIS [Concomitant]
  11. MELOXICAM [Concomitant]
  12. QVAR [Concomitant]
  13. LEFLUNOMIDE [Concomitant]
  14. HUMIRA [Concomitant]
  15. BENADRYL ALLERGY AND SINUS [Concomitant]
  16. NEXIUM [Concomitant]
  17. FERROUS SULFATE [Concomitant]
  18. VITAMIN D [Concomitant]
  19. MULTIVITAMIN [Concomitant]

REACTIONS (1)
  - Drug hypersensitivity [Unknown]
